FAERS Safety Report 11377199 (Version 2)
Quarter: 2015Q3

REPORT INFORMATION
  Report Type: Spontaneous
  Country: GR (occurrence: GR)
  Receive Date: 20150813
  Receipt Date: 20150818
  Transmission Date: 20151125
  Serious: Yes (Hospitalization)
  Sender: FDA-Public Use
  Company Number: PHHY2015GR095355

PATIENT
  Age: 33 Year
  Sex: Female

DRUGS (1)
  1. CLOZAPINE. [Suspect]
     Active Substance: CLOZAPINE
     Indication: MANIA
     Route: 065

REACTIONS (17)
  - Pyrexia [Unknown]
  - Purpura [Unknown]
  - Deep vein thrombosis [Unknown]
  - Anaemia [Unknown]
  - Agranulocytosis [Unknown]
  - Gait disturbance [Unknown]
  - C-reactive protein increased [Unknown]
  - Leukopenia [Unknown]
  - Hypersensitivity vasculitis [Unknown]
  - Eosinopenia [Unknown]
  - Monocytopenia [Unknown]
  - Lymphopenia [Unknown]
  - Pneumonia streptococcal [Unknown]
  - Productive cough [Unknown]
  - Erythema [Unknown]
  - Red blood cell sedimentation rate increased [Unknown]
  - Swelling [Unknown]
